FAERS Safety Report 9609373 (Version 1)
Quarter: 2013Q4

REPORT INFORMATION
  Report Type: Spontaneous
  Country: US (occurrence: None)
  Receive Date: 20131007
  Receipt Date: 20131007
  Transmission Date: 20140711
  Serious: Yes (Disabling)
  Sender: FDA-Public Use
  Company Number: None

PATIENT
  Sex: Male

DRUGS (1)
  1. PREDNISONE [Suspect]
     Indication: SKIN DISORDER
     Route: 048

REACTIONS (2)
  - Blindness [None]
  - Overdose [None]
